FAERS Safety Report 12830260 (Version 2)
Quarter: 2017Q2

REPORT INFORMATION
  Report Type: Spontaneous
  Country: US (occurrence: US)
  Receive Date: 20161007
  Receipt Date: 20170504
  Transmission Date: 20170830
  Serious: Yes (Other)
  Sender: FDA-Public Use
  Company Number: US-SA-2016SA161510

PATIENT
  Age: 52 Year
  Sex: Female

DRUGS (12)
  1. CLONIDINE. [Concomitant]
     Active Substance: CLONIDINE
  2. VITAMIN D [Concomitant]
     Active Substance: CHOLECALCIFEROL
  3. AUBAGIO [Suspect]
     Active Substance: TERIFLUNOMIDE
     Indication: MULTIPLE SCLEROSIS
     Route: 048
     Dates: start: 2013, end: 201702
  4. SYNTHROID [Concomitant]
     Active Substance: LEVOTHYROXINE SODIUM
  5. CYMBALTA [Concomitant]
     Active Substance: DULOXETINE HYDROCHLORIDE
  6. VITAMIN D3 [Concomitant]
     Active Substance: CHOLECALCIFEROL
  7. DETROL [Concomitant]
     Active Substance: TOLTERODINE TARTRATE
  8. GLIPIZIDE. [Concomitant]
     Active Substance: GLIPIZIDE
  9. METFORMIN [Concomitant]
     Active Substance: METFORMIN HYDROCHLORIDE
  10. AUBAGIO [Suspect]
     Active Substance: TERIFLUNOMIDE
     Indication: MULTIPLE SCLEROSIS
     Route: 048
     Dates: start: 2013, end: 201702
  11. LISINOPRIL. [Concomitant]
     Active Substance: LISINOPRIL
  12. FISH OIL [Concomitant]
     Active Substance: FISH OIL

REACTIONS (4)
  - Hepatic enzyme increased [Unknown]
  - Hepatic cirrhosis [Unknown]
  - Depressed mood [Not Recovered/Not Resolved]
  - White blood cell count decreased [Unknown]

NARRATIVE: CASE EVENT DATE: 201602
